FAERS Safety Report 15267875 (Version 1)
Quarter: 2018Q3

REPORT INFORMATION
  Report Type: Spontaneous
  Country: US (occurrence: US)
  Receive Date: 20180725
  Receipt Date: 20180725
  Transmission Date: 20181010
  Serious: Yes (Disabling)
  Sender: FDA-Public Use
  Company Number: None

PATIENT
  Age: 50 Year
  Sex: Female
  Weight: 63.45 kg

DRUGS (1)
  1. MELOXICAM 15 MG TABLET [Suspect]
     Active Substance: MELOXICAM
     Indication: TENDONITIS
     Dosage: ?          QUANTITY:1 TABLET(S);?
     Route: 048
     Dates: start: 20180718, end: 20180722

REACTIONS (5)
  - Weight increased [None]
  - Dyspnoea [None]
  - Menstruation irregular [None]
  - Swelling [None]
  - Constipation [None]

NARRATIVE: CASE EVENT DATE: 20180722
